FAERS Safety Report 9321447 (Version 1)
Quarter: 2013Q2

REPORT INFORMATION
  Report Type: Spontaneous
  Country: FR (occurrence: FR)
  Receive Date: 20130531
  Receipt Date: 20130531
  Transmission Date: 20140414
  Serious: Yes (Hospitalization)
  Sender: FDA-Public Use
  Company Number: FR-PERRIGO-13FR005543

PATIENT
  Age: 17 Year
  Sex: Female
  Weight: 64.1 kg

DRUGS (3)
  1. ACETAMINOPHEN 650MG ER 544 [Suspect]
     Indication: INTENTIONAL OVERDOSE
     Dosage: MORE THAN 10 G, SINGLE
     Route: 048
  2. ALPRAZOLAM [Suspect]
     Indication: INTENTIONAL OVERDOSE
     Dosage: SEVERAL TABLETS, SINGLE
     Route: 048
  3. CEFPODOXIME [Suspect]
     Indication: INTENTIONAL OVERDOSE
     Dosage: SEVERAL TABLETS, SINGLE
     Route: 048

REACTIONS (3)
  - Hepatic failure [Recovered/Resolved]
  - Renal failure [Recovered/Resolved]
  - Intentional overdose [Recovered/Resolved]
